FAERS Safety Report 12244909 (Version 2)
Quarter: 2016Q2

REPORT INFORMATION
  Report Type: Report from Study
  Country: FR (occurrence: FR)
  Receive Date: 20160407
  Receipt Date: 20160524
  Transmission Date: 20160815
  Serious: Yes (Other)
  Sender: FDA-Public Use
  Company Number: FR-TEVA-649438ISR

PATIENT
  Age: 64 Year
  Sex: Female
  Weight: 57 kg

DRUGS (6)
  1. ARACYTINE [Suspect]
     Active Substance: CYTARABINE
     Indication: ACUTE MYELOID LEUKAEMIA
     Dosage: 200 MG/M2 DAILY;
     Route: 042
     Dates: start: 20130430, end: 20130506
  2. IDARUBICIN [Suspect]
     Active Substance: IDARUBICIN
     Indication: ACUTE MYELOID LEUKAEMIA
     Dosage: 9 MG/M2 DAILY; EXACT DAILY DOSE: 20.5 MG
     Route: 042
     Dates: start: 20130430, end: 20130804
  3. VESANOID [Suspect]
     Active Substance: TRETINOIN
     Dosage: 70 MILLIGRAM DAILY;
     Route: 048
     Dates: start: 20130619, end: 20150308
  4. ARACYTINE [Suspect]
     Active Substance: CYTARABINE
     Dosage: ONGOING
     Route: 042
     Dates: start: 20151005
  5. METHOTREXATE [Suspect]
     Active Substance: METHOTREXATE
     Indication: ACUTE MYELOID LEUKAEMIA
     Dosage: 1.7857 MILLIGRAM DAILY;
     Route: 048
     Dates: start: 20130924, end: 20150210
  6. PURINETHOL [Suspect]
     Active Substance: MERCAPTOPURINE
     Indication: ACUTE MYELOID LEUKAEMIA
     Dosage: 50 MILLIGRAM DAILY;
     Route: 048
     Dates: start: 20130924, end: 20150210

REACTIONS (1)
  - Myelodysplastic syndrome [Not Recovered/Not Resolved]

NARRATIVE: CASE EVENT DATE: 20150604
